FAERS Safety Report 22263656 (Version 1)
Quarter: 2023Q2

REPORT INFORMATION
  Report Type: Spontaneous
  Country: UA (occurrence: UA)
  Receive Date: 20230428
  Receipt Date: 20230428
  Transmission Date: 20230721
  Serious: Yes (Death, Hospitalization, Other)
  Sender: FDA-Public Use
  Company Number: UA-STERISCIENCE B.V.-2023-ST-001217

PATIENT
  Age: 3 Year
  Sex: Male

DRUGS (12)
  1. MEROPENEM [Suspect]
     Active Substance: MEROPENEM
     Indication: Haemophagocytic lymphohistiocytosis
     Dosage: 60 MILLIGRAM/KILOGRAM, QD
     Route: 065
  2. MEROPENEM [Suspect]
     Active Substance: MEROPENEM
     Indication: Multisystem inflammatory syndrome in children
  3. MEROPENEM [Suspect]
     Active Substance: MEROPENEM
     Indication: Pneumonia
  4. HUMAN IMMUNOGLOBULIN G [Suspect]
     Active Substance: HUMAN IMMUNOGLOBULIN G
     Indication: Multisystem inflammatory syndrome in children
     Dosage: 2G/KG OVER 3DAYS
     Route: 042
  5. METHYLPREDNISOLONE [Suspect]
     Active Substance: METHYLPREDNISOLONE
     Indication: Multisystem inflammatory syndrome in children
     Dosage: 10 MILLIGRAM/KILOGRAM, QD
     Route: 042
  6. CEFEPIME [Suspect]
     Active Substance: CEFEPIME HYDROCHLORIDE
     Indication: Haemophagocytic lymphohistiocytosis
     Dosage: 100 MILLIGRAM/KILOGRAM, QD
     Route: 065
  7. CEFEPIME [Suspect]
     Active Substance: CEFEPIME HYDROCHLORIDE
     Indication: Multisystem inflammatory syndrome in children
  8. CEFEPIME [Suspect]
     Active Substance: CEFEPIME HYDROCHLORIDE
     Indication: Pneumonia
  9. AZATHIOPRINE [Concomitant]
     Active Substance: AZATHIOPRINE
     Indication: Immune-mediated endocrinopathy
     Dosage: UNK
     Route: 065
  10. FLUCONAZOLE [Concomitant]
     Active Substance: FLUCONAZOLE
     Indication: Product used for unknown indication
     Dosage: 6 MILLIGRAM/KILOGRAM, QD
     Route: 065
  11. Cryoplasma [Concomitant]
     Indication: Product used for unknown indication
     Dosage: 10 ML/KG/DAY
     Route: 065
  12. Cryoplasma [Concomitant]
     Dosage: ADDITIONAL THERAPY; 10 ML/KG/DAY
     Route: 065

REACTIONS (1)
  - Drug ineffective for unapproved indication [Fatal]
